FAERS Safety Report 17969614 (Version 1)
Quarter: 2020Q3

REPORT INFORMATION
  Report Type: Spontaneous
  Country: US (occurrence: US)
  Receive Date: 20200701
  Receipt Date: 20200701
  Transmission Date: 20201103
  Serious: Yes (Hospitalization)
  Sender: FDA-Public Use
  Company Number: US-ABBVIE-20K-163-3465195-00

PATIENT
  Age: 40 Year
  Sex: Female

DRUGS (1)
  1. HUMIRA [Suspect]
     Active Substance: ADALIMUMAB
     Indication: COLITIS ULCERATIVE
     Route: 058
     Dates: start: 202005, end: 20200613

REACTIONS (3)
  - Dyspnoea [Unknown]
  - Device issue [Recovered/Resolved]
  - Fluid overload [Unknown]

NARRATIVE: CASE EVENT DATE: 20200625
